FAERS Safety Report 12756026 (Version 2)
Quarter: 2016Q4

REPORT INFORMATION
  Report Type: Report from Study
  Country: CN (occurrence: CN)
  Receive Date: 20160916
  Receipt Date: 20161024
  Transmission Date: 20170207
  Serious: Yes (Hospitalization)
  Sender: FDA-Public Use
  Company Number: CN-CELGENEUS-CHN-2016073369

PATIENT
  Age: 75 Year
  Sex: Female
  Weight: 60 kg

DRUGS (19)
  1. THALIDOMIDE [Suspect]
     Active Substance: THALIDOMIDE
     Route: 048
  2. AMBROXOL HYDROCHLORIDE [Concomitant]
     Active Substance: AMBROXOL HYDROCHLORIDE
     Indication: PROPHYLAXIS
  3. GLUTATHIONE [Concomitant]
     Active Substance: GLUTATHIONE
     Indication: PROPHYLAXIS
     Route: 065
     Dates: start: 20150928, end: 20151010
  4. DEXAMETHASONE. [Suspect]
     Active Substance: DEXAMETHASONE
     Route: 065
     Dates: start: 20150922, end: 20151015
  5. HUMAN RECOMBINANT INTERLEUKIN [Concomitant]
     Indication: GAMMA INTERFERON THERAPY
     Route: 065
     Dates: start: 20150922, end: 20151015
  6. REVLIMID [Suspect]
     Active Substance: LENALIDOMIDE
     Route: 048
     Dates: start: 20140922, end: 20150902
  7. THALIDOMIDE [Suspect]
     Active Substance: THALIDOMIDE
     Route: 048
  8. DEXAMETHASONE. [Suspect]
     Active Substance: DEXAMETHASONE
     Indication: PLASMA CELL MYELOMA
     Route: 065
     Dates: start: 20150226, end: 20150816
  9. IFOSFAMIDE. [Concomitant]
     Active Substance: IFOSFAMIDE
     Indication: PLASMA CELL MYELOMA
     Route: 065
  10. LEVAMLODIPINE [Concomitant]
     Active Substance: LEVAMLODIPINE
     Indication: BLOOD PRESSURE INCREASED
     Route: 065
     Dates: start: 20150923, end: 20151015
  11. TORASEMIDE [Concomitant]
     Active Substance: TORSEMIDE
     Indication: DIURETIC THERAPY
     Route: 065
     Dates: start: 20150926, end: 20151005
  12. REVLIMID [Suspect]
     Active Substance: LENALIDOMIDE
     Indication: PLASMA CELL MYELOMA
     Route: 048
     Dates: start: 20140306
  13. ONDANSETRON [Concomitant]
     Active Substance: ONDANSETRON
     Indication: CHEMOTHERAPY
     Route: 065
     Dates: start: 20150928, end: 20151004
  14. POTASSIUM CHLORIDE. [Concomitant]
     Active Substance: POTASSIUM CHLORIDE
     Indication: MINERAL SUPPLEMENTATION
     Route: 065
     Dates: start: 20150928, end: 20151014
  15. THYMOPENTIN [Concomitant]
     Active Substance: THYMOPENTIN
     Indication: GAMMA INTERFERON THERAPY
     Route: 065
     Dates: start: 20150922, end: 20151015
  16. TIOPRONIN [Concomitant]
     Active Substance: TIOPRONIN
     Indication: PROPHYLAXIS
     Route: 065
     Dates: start: 20150928, end: 20151010
  17. THALIDOMIDE [Suspect]
     Active Substance: THALIDOMIDE
     Indication: PLASMA CELL MYELOMA
     Route: 048
  18. AMBROXOL HYDROCHLORIDE [Concomitant]
     Active Substance: AMBROXOL HYDROCHLORIDE
     Indication: ANTITUSSIVE THERAPY
     Route: 065
     Dates: start: 20150928, end: 20151005
  19. HUMAN GRANULOCYTE COLONY STIMULATING FACTOR [Concomitant]
     Indication: GRANULOCYTOPENIA
     Route: 065
     Dates: start: 20150903, end: 20151015

REACTIONS (1)
  - Acute myeloid leukaemia [Not Recovered/Not Resolved]

NARRATIVE: CASE EVENT DATE: 20150924
